FAERS Safety Report 9258732 (Version 4)
Quarter: 2013Q3

REPORT INFORMATION
  Report Type: Spontaneous
  Country: JP (occurrence: JP)
  Receive Date: 20130426
  Receipt Date: 20130814
  Transmission Date: 20140515
  Serious: Yes (Hospitalization, Other)
  Sender: FDA-Public Use
  Company Number: JP-AMGEN-JPNSP2013028981

PATIENT
  Age: 73 Year
  Sex: Male

DRUGS (12)
  1. VECTIBIX [Suspect]
     Indication: COLON CANCER
     Dosage: 6 MG/KG, Q2WK
     Route: 041
     Dates: start: 20120815, end: 20130404
  2. TAKEPRON [Concomitant]
     Indication: PROPHYLAXIS AGAINST GASTROINTESTINAL ULCER
     Dosage: 15 MG, QD
     Route: 048
     Dates: start: 20120801
  3. OXALIPLATIN [Concomitant]
     Indication: COLON CANCER
     Dosage: UNK UNK, Q2WK
     Route: 041
     Dates: start: 20120801, end: 20130404
  4. FLUOROURACIL [Concomitant]
     Indication: COLON CANCER
     Dosage: UNK UNK, Q2WK
     Route: 042
     Dates: start: 20120801, end: 20130404
  5. LEVOFOLINATE CALCIUM [Concomitant]
     Indication: COLON CANCER
     Dosage: UNK UNK, Q2WK
     Route: 041
     Dates: start: 20120801, end: 20130404
  6. PROMAC                             /01312301/ [Concomitant]
     Indication: DYSGEUSIA
     Dosage: 150 MG, BID
     Route: 048
     Dates: start: 20121025
  7. METHYCOBAL [Concomitant]
     Indication: NEUROPATHY PERIPHERAL
     Dosage: 1000 MUG, BID
     Route: 048
     Dates: start: 20121025
  8. LOXONIN [Concomitant]
     Indication: CANCER PAIN
     Dosage: 60 MG, TID
     Route: 048
     Dates: start: 20120801, end: 20130501
  9. GASMOTIN [Concomitant]
     Indication: CONSTIPATION
     Dosage: 5 MG, TID
     Route: 048
     Dates: start: 20120801, end: 20130501
  10. ZETIA [Concomitant]
     Indication: HYPERLIPIDAEMIA
     Dosage: 10 UNK, UNK
     Route: 048
     Dates: start: 20130307
  11. HIRUDOID                           /00723701/ [Concomitant]
     Indication: SKIN DISORDER
     Dosage: UNK UNK, QD
     Route: 062
     Dates: start: 20120815, end: 20130404
  12. MAGMITT [Concomitant]
     Indication: CONSTIPATION
     Dosage: 500 MG, TID
     Route: 048
     Dates: start: 20120829

REACTIONS (1)
  - Interstitial lung disease [Recovered/Resolved]
